FAERS Safety Report 8347520-5 (Version None)
Quarter: 2012Q2

REPORT INFORMATION
  Report Type: 
  Country: None (occurrence: None)
  Receive Date: 20120509
  Receipt Date: 20120426
  Transmission Date: 20120825
  Serious: Yes (Hospitalization, Other)
  Sender: FDA-Public Use
  Company Number: PL-ROCHE-1066373

PATIENT
  Sex: Female
  Weight: 63 kg

DRUGS (5)
  1. PEGASYS [Suspect]
     Indication: HEPATITIS C
     Dates: start: 20110810, end: 20110914
  2. BLINDED ALISPORIVIR [Suspect]
     Indication: HEPATITIS C
     Dates: start: 20110810
  3. PEGASYS [Suspect]
     Dates: start: 20110921
  4. EUTHYROX [Concomitant]
  5. COPEGUS [Suspect]
     Indication: HEPATITIS C
     Dates: start: 20110810

REACTIONS (3)
  - LEUKOPENIA [None]
  - PYREXIA [None]
  - ANAEMIA [None]
